FAERS Safety Report 4912194-X (Version None)
Quarter: 2006Q1

REPORT INFORMATION
  Report Type: 
  Country: None (occurrence: None)
  Receive Date: 20060215
  Receipt Date: 20050920
  Transmission Date: 20060701
  Serious: No
  Sender: FDA-Public Use
  Company Number: US-GLAXOSMITHKLINE-A0575045A

PATIENT
  Age: 53 Year
  Sex: Male

DRUGS (7)
  1. VALTREX [Suspect]
     Dosage: 500MG TWICE PER DAY
     Route: 048
     Dates: start: 19970101
  2. LOTREL [Concomitant]
  3. PLAVIX [Concomitant]
  4. LOPRESSOR [Concomitant]
  5. VYTORIN [Concomitant]
  6. AMITRIPTYLINE HCL [Concomitant]
  7. ACYCLOVIR SODIUM [Concomitant]

REACTIONS (4)
  - BLISTER [None]
  - DRUG INEFFECTIVE [None]
  - PRURITUS [None]
  - SKIN INFLAMMATION [None]
